FAERS Safety Report 7301998 (Version 6)
Quarter: 2020Q3

REPORT INFORMATION
  Report Type: Report from Study
  Country: US (occurrence: US)
  Receive Date: 20100302
  Receipt Date: 20100902
  Transmission Date: 20201104
  Serious: Yes (Other)
  Sender: FDA-Public Use
  Company Number: US-JNJFOC-20100210000

PATIENT
  Age: 43 Year
  Sex: Female
  Weight: 58.6 kg

DRUGS (18)
  1. CISAPRIDE [Suspect]
     Active Substance: CISAPRIDE
     Route: 050
  2. CISAPRIDE [Suspect]
     Active Substance: CISAPRIDE
     Route: 050
  3. LASIX [Concomitant]
     Active Substance: FUROSEMIDE
     Indication: FLUID RETENTION
     Route: 065
  4. CISAPRIDE [Suspect]
     Active Substance: CISAPRIDE
     Route: 050
  5. PREVACID [Concomitant]
     Active Substance: LANSOPRAZOLE
     Indication: GASTROOESOPHAGEAL REFLUX DISEASE
     Route: 048
  6. ALBUTEROL. [Concomitant]
     Active Substance: ALBUTEROL
     Indication: PNEUMONIA
     Route: 055
  7. CISAPRIDE [Suspect]
     Active Substance: CISAPRIDE
     Indication: GASTROINTESTINAL MOTILITY DISORDER
     Route: 050
  8. CISAPRIDE [Suspect]
     Active Substance: CISAPRIDE
     Route: 050
  9. CISAPRIDE [Suspect]
     Active Substance: CISAPRIDE
     Indication: GASTROOESOPHAGEAL REFLUX DISEASE
     Route: 050
  10. CISAPRIDE [Suspect]
     Active Substance: CISAPRIDE
     Route: 050
  11. CISAPRIDE [Suspect]
     Active Substance: CISAPRIDE
     Route: 050
  12. CISAPRIDE [Suspect]
     Active Substance: CISAPRIDE
     Route: 050
  13. CISAPRIDE [Suspect]
     Active Substance: CISAPRIDE
     Route: 050
  14. CALCIUM CARBONATE. [Concomitant]
     Active Substance: CALCIUM CARBONATE
     Indication: MEDICAL DIET
     Route: 065
  15. ZEGERID [Concomitant]
     Active Substance: OMEPRAZOLE\SODIUM BICARBONATE
     Indication: GASTROOESOPHAGEAL REFLUX DISEASE
     Route: 048
  16. SUDAFED [Concomitant]
     Active Substance: PSEUDOEPHEDRINE HYDROCHLORIDE
     Indication: MULTIPLE ALLERGIES
     Route: 065
  17. CISAPRIDE [Suspect]
     Active Substance: CISAPRIDE
     Route: 050
  18. CISAPRIDE [Suspect]
     Active Substance: CISAPRIDE
     Route: 050

REACTIONS (1)
  - Electrocardiogram QT prolonged [Recovered/Resolved]

NARRATIVE: CASE EVENT DATE: 20100222
